FAERS Safety Report 18916750 (Version 1)
Quarter: 2021Q1

REPORT INFORMATION
  Report Type: Spontaneous
  Country: IT (occurrence: IT)
  Receive Date: 20210219
  Receipt Date: 20210219
  Transmission Date: 20210420
  Serious: Yes (Hospitalization)
  Sender: FDA-Public Use
  Company Number: IT-ELI_LILLY_AND_COMPANY-IT202102007760

PATIENT
  Age: 57 Year
  Sex: Male
  Weight: 78 kg

DRUGS (3)
  1. CARBOPLATIN. [Suspect]
     Active Substance: CARBOPLATIN
     Indication: LUNG NEOPLASM MALIGNANT
     Dosage: 420 MG, CYCLICAL
     Route: 042
     Dates: start: 20210129, end: 20210129
  2. CISPLATIN. [Concomitant]
     Active Substance: CISPLATIN
     Indication: LUNG NEOPLASM MALIGNANT
     Dosage: UNK, UNKNOWN
     Dates: start: 20201210, end: 20201231
  3. ALIMTA [Suspect]
     Active Substance: PEMETREXED DISODIUM
     Indication: LUNG NEOPLASM MALIGNANT
     Dosage: 500 MG/M2, CYCLICAL
     Route: 042
     Dates: start: 20201210, end: 20210129

REACTIONS (5)
  - Hypercreatininaemia [Unknown]
  - Anaemia [Unknown]
  - Neutropenia [Unknown]
  - Mucosal inflammation [Unknown]
  - Off label use [Unknown]

NARRATIVE: CASE EVENT DATE: 20210207
